FAERS Safety Report 7346874-6 (Version None)
Quarter: 2011Q1

REPORT INFORMATION
  Report Type: 
  Country: None (occurrence: None)
  Receive Date: 20110311
  Receipt Date: 20110307
  Transmission Date: 20110831
  Serious: No
  Sender: FDA-Public Use
  Company Number: JP-SANOFI-AVENTIS-2011SA011122

PATIENT

DRUGS (3)
  1. AMARYL [Suspect]
     Route: 048
  2. ZETIA [Suspect]
     Route: 048
  3. OMEPRAL [Suspect]
     Route: 048

REACTIONS (1)
  - BLOOD CREATINE PHOSPHOKINASE INCREASED [None]
